FAERS Safety Report 12646739 (Version 1)
Quarter: 2016Q3

REPORT INFORMATION
  Report Type: Report from Study
  Country: US (occurrence: US)
  Receive Date: 20160812
  Receipt Date: 20160812
  Transmission Date: 20161109
  Serious: Yes (Other)
  Sender: FDA-Public Use
  Company Number: US-ROCHE-1561839

PATIENT
  Age: 19 Year
  Sex: Male
  Weight: 42.7 kg

DRUGS (2)
  1. VISMODEGIB [Suspect]
     Active Substance: VISMODEGIB
     Dosage: COURSE 2: 7200MG
     Route: 048
     Dates: start: 20101025, end: 20101117
  2. VISMODEGIB [Suspect]
     Active Substance: VISMODEGIB
     Indication: MEDULLOBLASTOMA
     Dosage: CYCLE 28 DAYS, CYCLE 1?COURSE 1: 7800MG
     Route: 048
     Dates: start: 20100927

REACTIONS (2)
  - Arthralgia [Unknown]
  - Pain in extremity [Unknown]

NARRATIVE: CASE EVENT DATE: 20101118
